FAERS Safety Report 18869032 (Version 3)
Quarter: 2021Q2

REPORT INFORMATION
  Report Type: Spontaneous
  Country: US (occurrence: US)
  Receive Date: 20210209
  Receipt Date: 20210429
  Transmission Date: 20210717
  Serious: Yes (Death)
  Sender: FDA-Public Use
  Company Number: US-PFIZER INC-2021122054

PATIENT
  Age: 87 Year
  Sex: Male
  Weight: 63.5 kg

DRUGS (4)
  1. BRAFTOVI [Suspect]
     Active Substance: ENCORAFENIB
     Dosage: 300 MG
     Route: 048
  2. BRAFTOVI [Suspect]
     Active Substance: ENCORAFENIB
     Indication: LUNG NEOPLASM MALIGNANT
     Dosage: 150 MG, 1X/DAY (75MG TWO CAPSULES ONCE A DAY BY MOUTH, IN THE MORNING )
     Route: 048
     Dates: start: 202102
  3. MEKTOVI [Suspect]
     Active Substance: BINIMETINIB
     Indication: LUNG NEOPLASM MALIGNANT
     Dosage: 15 MG, 2X/DAY (15MG TABLET TWICE A DAY BY MOUTH, ONCE IN MORNING AND ONCE IN THE AFTERNOON)
     Route: 048
     Dates: start: 202102
  4. MEKTOVI [Suspect]
     Active Substance: BINIMETINIB
     Dosage: 45 MG
     Route: 048

REACTIONS (8)
  - Abdominal discomfort [Recovering/Resolving]
  - Nausea [Unknown]
  - Somnolence [Not Recovered/Not Resolved]
  - Arthralgia [Not Recovered/Not Resolved]
  - Death [Fatal]
  - Abdominal pain upper [Unknown]
  - Dizziness [Recovered/Resolved]
  - Off label use [Unknown]

NARRATIVE: CASE EVENT DATE: 202102
